FAERS Safety Report 7354387-0 (Version None)
Quarter: 2011Q1

REPORT INFORMATION
  Report Type: 
  Country: None (occurrence: None)
  Receive Date: 20110316
  Receipt Date: 20110301
  Transmission Date: 20110831
  Serious: Yes (Hospitalization)
  Sender: FDA-Public Use
  Company Number: PHHY2011FR17524

PATIENT
  Sex: Male

DRUGS (4)
  1. ESOMEPRAZOLE [Concomitant]
     Dosage: 1 DF, UNK
     Route: 048
  2. AFINITOR [Suspect]
     Dosage: 5 MG, DAILY
     Dates: start: 20100525, end: 20101019
  3. AFINITOR [Suspect]
     Dates: start: 20101028
  4. SOMATULINE [Concomitant]
     Route: 051
     Dates: start: 20100101

REACTIONS (7)
  - PYREXIA [None]
  - BRONCHOPULMONARY ASPERGILLOSIS [None]
  - BACK PAIN [None]
  - COUGH [None]
  - OBSTRUCTIVE AIRWAYS DISORDER [None]
  - FUNGAL TEST POSITIVE [None]
  - LUNG DISORDER [None]
